FAERS Safety Report 8508063-9 (Version None)
Quarter: 2012Q3

REPORT INFORMATION
  Report Type: 
  Country: None (occurrence: None)
  Receive Date: 20120713
  Receipt Date: 20120710
  Transmission Date: 20120928
  Serious: Yes (Hospitalization, Disabling, Other)
  Sender: FDA-Public Use
  Company Number: US-009507513-1203USA03429

PATIENT

DRUGS (10)
  1. FOSAMAX PLUS D [Suspect]
     Route: 048
  2. FOSAMAX [Suspect]
     Dosage: 70 MG, UNK
     Route: 048
  3. FOSAMAX [Suspect]
     Dosage: UNK
  4. CALCIUM (UNSPECIFIED) [Concomitant]
     Indication: OSTEOPOROSIS
  5. MK-9359 [Concomitant]
     Indication: HYPERTENSION
     Dosage: 50-100
     Route: 048
     Dates: start: 19950410
  6. FOSAMAX [Suspect]
     Route: 048
  7. SIMVASTATIN [Concomitant]
     Indication: HYPERCHOLESTEROLAEMIA
     Dosage: 40 MG, UNK
     Route: 048
  8. MK-0152 [Concomitant]
     Indication: HYPERTENSION
     Dosage: 25 MG, QD
     Route: 048
  9. FOSAMAX [Suspect]
     Indication: OSTEOPOROSIS
     Dosage: 10 MG, QD
     Route: 048
     Dates: start: 19970701, end: 20100301
  10. VITAMIN D (UNSPECIFIED) [Concomitant]
     Indication: OSTEOPOROSIS

REACTIONS (21)
  - COMPLEX REGIONAL PAIN SYNDROME [None]
  - DISLOCATION OF VERTEBRA [None]
  - TENDONITIS [None]
  - OSTEOPOROSIS [None]
  - SPINAL OSTEOARTHRITIS [None]
  - KNEE DEFORMITY [None]
  - GASTROINTESTINAL DISORDER [None]
  - UPPER RESPIRATORY TRACT INFECTION [None]
  - URTICARIA [None]
  - FEMUR FRACTURE [None]
  - CORNEAL ABRASION [None]
  - POSTMENOPAUSAL HAEMORRHAGE [None]
  - ARTHROPATHY [None]
  - LOW TURNOVER OSTEOPATHY [None]
  - STRESS FRACTURE [None]
  - METATARSALGIA [None]
  - CARDIAC DISORDER [None]
  - CORNEAL EROSION [None]
  - EXOSTOSIS [None]
  - ANGIOEDEMA [None]
  - OSTEOARTHRITIS [None]
